FAERS Safety Report 9258812 (Version 9)
Quarter: 2013Q3

REPORT INFORMATION
  Report Type: Spontaneous
  Country: CO (occurrence: CO)
  Receive Date: 20130426
  Receipt Date: 20130717
  Transmission Date: 20140515
  Serious: Yes (Other)
  Sender: FDA-Public Use
  Company Number: CO-VERTEX PHARMACEUTICALS INC.-2013-005439

PATIENT
  Age: 57 Year
  Sex: Female
  Weight: 85 kg

DRUGS (8)
  1. INCIVO [Suspect]
     Indication: HEPATITIS C
     Dosage: 2 DOSAGES 375 MG, TID
     Route: 048
     Dates: start: 20130419
  2. RIBAVIRIN [Concomitant]
     Indication: HEPATITIS C
     Dosage: DOSAGE FORM: TABLET, TOTAL DAILY DOSE: 200 MG
     Route: 048
     Dates: start: 20130419
  3. RIBAVIRIN [Concomitant]
     Dosage: DOSAGE FORM: TABLET, TOTAL DAILY DOSE: 200 MG
     Route: 048
  4. PEGYLATED INTERFERON [Concomitant]
     Indication: HEPATITIS C
     Dosage: 100 ?G, UNK
  5. PEGYLATED INTERFERON [Concomitant]
     Dosage: DOSAGE FORM: AMPOULES
     Route: 058
     Dates: start: 20130419
  6. PEGYLATED INTERFERON [Concomitant]
     Dosage: DOSAGE FORM: AMPOULES
     Route: 058
  7. METOPROLOL [Concomitant]
     Indication: HYPERTENSION
     Dosage: DOSAGE FORM: TABLET
     Route: 048
  8. METFORMINE [Concomitant]
     Indication: DIABETES MELLITUS
     Dosage: DOSAGE FORM: TABLET
     Route: 048

REACTIONS (20)
  - Depression [Unknown]
  - Anxiety [Unknown]
  - Leukopenia [Unknown]
  - Neutropenia [Unknown]
  - Thrombocytopenia [Unknown]
  - Dizziness [Unknown]
  - Asthenia [Unknown]
  - Malaise [Unknown]
  - Fatigue [Not Recovered/Not Resolved]
  - Dizziness [Unknown]
  - Headache [Not Recovered/Not Resolved]
  - Dry mouth [Not Recovered/Not Resolved]
  - Feeling hot [Not Recovered/Not Resolved]
  - Asthenia [Not Recovered/Not Resolved]
  - Decreased appetite [Unknown]
  - Pyrexia [Unknown]
  - Vomiting [Not Recovered/Not Resolved]
  - Anal pruritus [Not Recovered/Not Resolved]
  - Pruritus [Unknown]
  - Nausea [Not Recovered/Not Resolved]
